FAERS Safety Report 8622021-5 (Version None)
Quarter: 2012Q3

REPORT INFORMATION
  Report Type: 
  Country: None (occurrence: None)
  Receive Date: 20120823
  Receipt Date: 20120823
  Transmission Date: 20120928
  Serious: Yes (Other)
  Sender: FDA-Public Use
  Company Number: None

PATIENT
  Sex: Female
  Weight: 77.1115 kg

DRUGS (2)
  1. HERCEPTIN [Suspect]
  2. PREDNISOLONE [Concomitant]

REACTIONS (2)
  - URTICARIA [None]
  - ANGIOEDEMA [None]
